FAERS Safety Report 17083782 (Version 6)
Quarter: 2020Q2

REPORT INFORMATION
  Report Type: Report from Study
  Country: US (occurrence: US)
  Receive Date: 20191127
  Receipt Date: 20200522
  Transmission Date: 20200713
  Serious: No
  Sender: FDA-Public Use
  Company Number: NVSC2019US049963

PATIENT
  Age: 84 Year
  Sex: Female

DRUGS (3)
  1. BEOVU [Suspect]
     Active Substance: BROLUCIZUMAB-DBLL
     Dosage: UNK
     Route: 047
  2. BEOVU [Suspect]
     Active Substance: BROLUCIZUMAB-DBLL
     Indication: NEOVASCULAR AGE-RELATED MACULAR DEGENERATION
     Dosage: (ONE SINGLE DOSE)
     Route: 047
     Dates: start: 20191118
  3. BEOVU [Suspect]
     Active Substance: BROLUCIZUMAB-DBLL
     Dosage: UNK
     Route: 047
     Dates: start: 20200116

REACTIONS (10)
  - Eye pruritus [Recovered/Resolved]
  - Immune system disorder [Recovering/Resolving]
  - Vitreous floaters [Recovered/Resolved]
  - Vitreous floaters [Recovered/Resolved]
  - Visual impairment [Unknown]
  - Vitreous floaters [Unknown]
  - Ocular hyperaemia [Recovering/Resolving]
  - Eye pain [Recovered/Resolved]
  - Asthenopia [Recovering/Resolving]
  - Intraocular pressure decreased [Recovered/Resolved]

NARRATIVE: CASE EVENT DATE: 20191119
